FAERS Safety Report 21676392 (Version 3)
Quarter: 2023Q2

REPORT INFORMATION
  Report Type: Spontaneous
  Country: SK (occurrence: SK)
  Receive Date: 20221202
  Receipt Date: 20230620
  Transmission Date: 20230722
  Serious: Yes (Hospitalization, Other)
  Sender: FDA-Public Use
  Company Number: SK-PFM-2022-08363

PATIENT
  Age: 5 Month
  Sex: Female
  Weight: 6.2 kg

DRUGS (10)
  1. PROPRANOLOL HYDROCHLORIDE [Suspect]
     Active Substance: PROPRANOLOL HYDROCHLORIDE
     Indication: Infantile haemangioma
     Dosage: 3 MG, EVENING
     Route: 048
     Dates: start: 20220930
  2. PROPRANOLOL HYDROCHLORIDE [Suspect]
     Active Substance: PROPRANOLOL HYDROCHLORIDE
     Dosage: 3 MG, BID (2/DAY)
     Route: 048
     Dates: start: 20221001
  3. PROPRANOLOL HYDROCHLORIDE [Suspect]
     Active Substance: PROPRANOLOL HYDROCHLORIDE
     Dosage: 3 MG, BID (2/DAY)
     Route: 048
     Dates: start: 20221002
  4. PROPRANOLOL HYDROCHLORIDE [Suspect]
     Active Substance: PROPRANOLOL HYDROCHLORIDE
     Dosage: 4MG IN THE MORNING, 3MG IN THE EVENING
     Route: 048
     Dates: start: 20221003, end: 20221005
  5. PROPRANOLOL HYDROCHLORIDE [Suspect]
     Active Substance: PROPRANOLOL HYDROCHLORIDE
     Dosage: 4MG IN THE MORNING, 4MG IN THE EVENING
     Route: 048
     Dates: start: 20221006, end: 20221008
  6. PROPRANOLOL HYDROCHLORIDE [Suspect]
     Active Substance: PROPRANOLOL HYDROCHLORIDE
     Dosage: 5MG IN THE MORNING, 4MG IN THE EVENING
     Route: 048
     Dates: start: 20221009, end: 20221011
  7. PROPRANOLOL HYDROCHLORIDE [Suspect]
     Active Substance: PROPRANOLOL HYDROCHLORIDE
     Dosage: 5MG IN THE MORNING, 5MG IN THE EVENING
     Route: 048
     Dates: start: 20221012, end: 20221014
  8. PROPRANOLOL HYDROCHLORIDE [Suspect]
     Active Substance: PROPRANOLOL HYDROCHLORIDE
     Dosage: 11 MG, 6-0-5MG, 6MG IN THE MORNING, 5MG IN THE EVENING, AROUND 10:00PM, ABOUT 2H AFTER THE EVENING D
     Route: 048
     Dates: start: 20221015, end: 20221017
  9. PROPRANOLOL HYDROCHLORIDE [Suspect]
     Active Substance: PROPRANOLOL HYDROCHLORIDE
     Dosage: 6MG IN THE MORNING, 6MG IN THE EVENING
     Route: 048
     Dates: start: 20221018, end: 20221020
  10. PROPRANOLOL HYDROCHLORIDE [Suspect]
     Active Substance: PROPRANOLOL HYDROCHLORIDE
     Dosage: 3 MG, UNK
     Route: 048
     Dates: start: 20221019, end: 20221020

REACTIONS (4)
  - Pericardial effusion [Recovering/Resolving]
  - Pericarditis infective [Unknown]
  - Sinus bradycardia [Recovered/Resolved]
  - Respiratory tract infection [Unknown]

NARRATIVE: CASE EVENT DATE: 20220101
